FAERS Safety Report 10687917 (Version 1)
Quarter: 2014Q4

REPORT INFORMATION
  Report Type: Spontaneous
  Country: US (occurrence: None)
  Receive Date: 20141231
  Receipt Date: 20141231
  Transmission Date: 20150529
  Serious: Yes (Hospitalization)
  Sender: FDA-Public Use
  Company Number: None

PATIENT
  Age: 59 Year
  Sex: Male
  Weight: 83 kg

DRUGS (2)
  1. ALLOPURINOL. [Suspect]
     Active Substance: ALLOPURINOL
     Indication: TUMOUR LYSIS SYNDROME
     Route: 048
     Dates: start: 20141112, end: 20141216
  2. ALLOPURINOL. [Suspect]
     Active Substance: ALLOPURINOL
     Route: 048
     Dates: start: 20141112, end: 20141216

REACTIONS (5)
  - Drug reaction with eosinophilia and systemic symptoms [None]
  - Rash [None]
  - Drug eruption [None]
  - Swelling face [None]
  - Eosinophilia [None]

NARRATIVE: CASE EVENT DATE: 20141216
